FAERS Safety Report 9736177 (Version 2)
Quarter: 2013Q4

REPORT INFORMATION
  Report Type: Report from Study
  Country: FR (occurrence: FR)
  Receive Date: 20131206
  Receipt Date: 20131206
  Transmission Date: 20140711
  Serious: Yes (Death, Hospitalization)
  Sender: FDA-Public Use
  Company Number: FR-OTSUKA-US-2012-11318

PATIENT
  Age: 36 Year
  Sex: Male
  Weight: 70 kg

DRUGS (10)
  1. BUSULFEX [Suspect]
     Indication: ACUTE MYELOID LEUKAEMIA
     Dosage: 3.2 MG/KG, QD (1/DAY)
     Route: 042
     Dates: start: 20111116, end: 20111119
  2. CYCLOPHOSPHAMIDE [Suspect]
     Indication: ACUTE MYELOID LEUKAEMIA
     Dosage: 60 MG/KG, CYCLICAL (1/21)
     Route: 042
     Dates: start: 20111121, end: 20111122
  3. DETURGYLONE [Concomitant]
  4. HYDROCORTISONE [Concomitant]
  5. EUPANTOL [Concomitant]
  6. LEDERFOLIN [Concomitant]
  7. AZITHROMYCIN [Concomitant]
     Dosage: UNK
     Dates: start: 20120719
  8. LOVENOX [Concomitant]
  9. POSACONAZOLE [Concomitant]
  10. ROCEPHINE [Concomitant]
     Dosage: UNK
     Dates: start: 20120622, end: 20120710

REACTIONS (1)
  - Interstitial lung disease [Fatal]
